FAERS Safety Report 12875609 (Version 1)
Quarter: 2016Q4

REPORT INFORMATION
  Report Type: Report from Study
  Country: DK (occurrence: DK)
  Receive Date: 20161024
  Receipt Date: 20161024
  Transmission Date: 20170207
  Serious: Yes (Other)
  Sender: FDA-Public Use
  Company Number: DK-ACCORD-045042

PATIENT
  Age: 44 Year
  Sex: Female

DRUGS (2)
  1. ERYTHROMYCIN. [Interacting]
     Active Substance: ERYTHROMYCIN
     Indication: INFECTION
     Route: 048
  2. SIMVASTATIN. [Suspect]
     Active Substance: SIMVASTATIN
     Indication: HYPERCHOLESTEROLAEMIA
     Route: 048

REACTIONS (2)
  - Potentiating drug interaction [Unknown]
  - Intercepted medication error [Unknown]
